FAERS Safety Report 10554419 (Version 3)
Quarter: 2014Q4

REPORT INFORMATION
  Report Type: Spontaneous
  Country: US (occurrence: US)
  Receive Date: 20141030
  Receipt Date: 20141222
  Transmission Date: 20150529
  Serious: No
  Sender: FDA-Public Use
  Company Number: US-PFIZER INC-2014298475

PATIENT
  Sex: Female

DRUGS (1)
  1. CHANTIX [Suspect]
     Active Substance: VARENICLINE TARTRATE
     Indication: SMOKING CESSATION THERAPY
     Dosage: UNK
     Dates: start: 2013, end: 2013

REACTIONS (13)
  - Pruritus [Unknown]
  - Nightmare [Unknown]
  - Insomnia [Unknown]
  - Irritability [Unknown]
  - Disturbance in attention [Unknown]
  - Anger [Unknown]
  - Erythema [Unknown]
  - Logorrhoea [Unknown]
  - Rash [Unknown]
  - Agitation [Unknown]
  - Headache [Unknown]
  - Nervousness [Unknown]
  - Tremor [Unknown]

NARRATIVE: CASE EVENT DATE: 2013
